FAERS Safety Report 11340730 (Version 2)
Quarter: 2015Q3

REPORT INFORMATION
  Report Type: Report from Study
  Country: BR (occurrence: BR)
  Receive Date: 20150805
  Receipt Date: 20150811
  Transmission Date: 20151125
  Serious: Yes (Death, Hospitalization)
  Sender: FDA-Public Use
  Company Number: BR-ASTRAZENECA-2015SE74195

PATIENT
  Age: 30353 Day
  Sex: Female

DRUGS (3)
  1. BRILINTA [Suspect]
     Active Substance: TICAGRELOR
     Indication: CORONARY ARTERY OCCLUSION
     Dosage: BID
     Route: 048
     Dates: start: 201506
  2. ASA [Concomitant]
     Active Substance: ASPIRIN
     Dates: start: 201506
  3. UNKNOWN [Concomitant]
     Active Substance: UNSPECIFIED INGREDIENT
     Indication: DIABETES MELLITUS
     Dates: start: 201506

REACTIONS (3)
  - Cardiac arrest [Fatal]
  - Thrombosis [Unknown]
  - Haemorrhage coronary artery [Recovered/Resolved]

NARRATIVE: CASE EVENT DATE: 20150728
